FAERS Safety Report 7554753-4 (Version None)
Quarter: 2011Q2

REPORT INFORMATION
  Report Type: 
  Country: None (occurrence: None)
  Receive Date: 20110617
  Receipt Date: 20110607
  Transmission Date: 20111010
  Serious: Yes (Other)
  Sender: FDA-Public Use
  Company Number: US-ROCHE-747977

PATIENT
  Sex: Female
  Weight: 72.6 kg

DRUGS (7)
  1. ACCUTANE [Suspect]
     Route: 048
     Dates: end: 20021201
  2. ACCUTANE [Suspect]
     Route: 048
     Dates: start: 20030601, end: 20031101
  3. CLARAVIS [Suspect]
     Route: 048
  4. ACCUTANE [Suspect]
     Indication: ACNE
     Route: 048
     Dates: start: 19990101
  5. AMNESTEEM [Suspect]
     Indication: ACNE
     Route: 048
     Dates: end: 20031113
  6. ACCUTANE [Suspect]
     Route: 048
     Dates: start: 20011204, end: 20020416
  7. VIOXX [Concomitant]
     Dates: start: 20000101

REACTIONS (15)
  - RECTAL HAEMORRHAGE [None]
  - INTESTINAL HAEMORRHAGE [None]
  - INFLAMMATORY BOWEL DISEASE [None]
  - CROHN'S DISEASE [None]
  - ABDOMINAL PAIN [None]
  - DEPRESSION [None]
  - COLITIS [None]
  - EPISTAXIS [None]
  - HEADACHE [None]
  - LIP DRY [None]
  - DRY SKIN [None]
  - NIGHT BLINDNESS [None]
  - BLOOD TRIGLYCERIDES INCREASED [None]
  - DRY EYE [None]
  - RED BLOOD CELL SEDIMENTATION RATE INCREASED [None]
